FAERS Safety Report 17836283 (Version 8)
Quarter: 2020Q3

REPORT INFORMATION
  Report Type: Spontaneous
  Country: CH (occurrence: CH)
  Receive Date: 20200529
  Receipt Date: 20200716
  Transmission Date: 20201103
  Serious: Yes (Other)
  Sender: FDA-Public Use
  Company Number: CH-ABBVIE-20K-151-3418691-00

PATIENT
  Age: 55 Year
  Sex: Male
  Weight: 78 kg

DRUGS (21)
  1. CYTARABIN [Suspect]
     Active Substance: CYTARABINE
     Indication: PRODUCT USED FOR UNKNOWN INDICATION
     Dosage: 2000 MG/M2/D; HIGH DOSE STANDARD
     Route: 041
     Dates: start: 20200215, end: 20200219
  2. G?CSF FILGRASTIM [Concomitant]
     Dosage: 30 MIO
     Route: 065
     Dates: start: 20200409, end: 20200413
  3. LOSARTAN. [Interacting]
     Active Substance: LOSARTAN
     Indication: PRODUCT USED FOR UNKNOWN INDICATION
     Route: 065
  4. PARACETAMOL [Concomitant]
     Active Substance: ACETAMINOPHEN
     Indication: PRODUCT USED FOR UNKNOWN INDICATION
     Dosage: MAXIMUM 400MG
     Route: 065
  5. IDARUBICIN [Suspect]
     Active Substance: IDARUBICIN
     Indication: PRODUCT USED FOR UNKNOWN INDICATION
     Dosage: 8 MG/M^2/ DAY, STANDARD DOSAGE:
     Route: 041
     Dates: start: 20200215, end: 20200217
  6. AZACITIDINE. [Concomitant]
     Active Substance: AZACITIDINE
     Indication: TRANSPLANT
     Route: 065
  7. COTRIMOXAZOLE [Concomitant]
     Active Substance: SULFAMETHOXAZOLE\TRIMETHOPRIM
     Indication: PRODUCT USED FOR UNKNOWN INDICATION
     Dosage: 80/160 MG
     Route: 065
     Dates: start: 202002
  8. FRAXIPARINE [Concomitant]
     Active Substance: NADROPARIN CALCIUM
     Indication: PRODUCT USED FOR UNKNOWN INDICATION
     Route: 065
  9. OXYCONTIN [Concomitant]
     Active Substance: OXYCODONE HYDROCHLORIDE
     Indication: PRODUCT USED FOR UNKNOWN INDICATION
     Route: 065
  10. VENCLYXTO [Suspect]
     Active Substance: VENETOCLAX
     Indication: CHLOROMA
     Route: 048
     Dates: start: 20200429, end: 20200622
  11. FLUDARABIN [Suspect]
     Active Substance: FLUDARABINE PHOSPHATE
     Indication: PRODUCT USED FOR UNKNOWN INDICATION
     Dosage: 30 MG/M2/DAY, HIGH DOSE STANDARD
     Route: 041
     Dates: start: 20200215, end: 20200219
  12. FLUDARABIN [Suspect]
     Active Substance: FLUDARABINE PHOSPHATE
     Route: 041
     Dates: start: 20200317, end: 20200321
  13. CYTARABIN [Suspect]
     Active Substance: CYTARABINE
     Route: 041
     Dates: start: 20200429
  14. PANTOPRAZOL [Concomitant]
     Active Substance: PANTOPRAZOLE SODIUM
     Indication: PRODUCT USED FOR UNKNOWN INDICATION
     Route: 065
  15. VIDAZA [Suspect]
     Active Substance: AZACITIDINE
     Indication: PRODUCT USED FOR UNKNOWN INDICATION
     Dosage: 80 MG/M^2/ DAY
     Route: 058
     Dates: start: 20200424, end: 20200428
  16. G?CSF FILGRASTIM [Concomitant]
     Indication: GRANULOCYTE COUNT DECREASED
     Dosage: 30 MIO
     Route: 065
     Dates: start: 20200302, end: 20200308
  17. METHOTREXATE. [Concomitant]
     Active Substance: METHOTREXATE
     Indication: PRODUCT USED FOR UNKNOWN INDICATION
     Route: 065
     Dates: start: 20200429
  18. METHYLPREDNISOLONE. [Concomitant]
     Active Substance: METHYLPREDNISOLONE
     Indication: PRODUCT USED FOR UNKNOWN INDICATION
     Route: 065
     Dates: start: 20200429
  19. SLOW INSULIN [Concomitant]
     Active Substance: INSULIN NOS
     Indication: DIABETES MELLITUS
     Route: 065
  20. CYTARABIN [Suspect]
     Active Substance: CYTARABINE
     Route: 041
     Dates: start: 20200317, end: 20200321
  21. FAST INSULINE [Concomitant]
     Indication: DIABETES MELLITUS
     Dosage: ACCORDING SCHEMA
     Route: 065

REACTIONS (3)
  - Cardiac failure [Not Recovered/Not Resolved]
  - Off label use [Unknown]
  - Cardiotoxicity [Not Recovered/Not Resolved]

NARRATIVE: CASE EVENT DATE: 2020
